FAERS Safety Report 8094086-3 (Version None)
Quarter: 2012Q1

REPORT INFORMATION
  Report Type: 
  Country: None (occurrence: None)
  Receive Date: 20120131
  Receipt Date: 20120118
  Transmission Date: 20120608
  Serious: Yes (Death)
  Sender: FDA-Public Use
  Company Number: IN-ASTELLAS-2012US000932

PATIENT
  Age: 61 Year
  Sex: Male

DRUGS (5)
  1. CEFAZOLIN [Concomitant]
     Indication: INFECTIOUS PERITONITIS
     Dosage: UNK
     Route: 065
  2. AMBISOME [Suspect]
     Indication: FUNGAL INFECTION
     Dosage: UNK
     Route: 042
  3. AMIKACIN [Concomitant]
     Indication: INFECTIOUS PERITONITIS
     Dosage: UNK
     Route: 065
  4. VANCOMYCIN [Concomitant]
     Indication: INFECTIOUS PERITONITIS
     Dosage: UNK
     Route: 065
  5. CEFTAZIDIME [Concomitant]
     Indication: INFECTIOUS PERITONITIS
     Dosage: UNK
     Route: 065

REACTIONS (7)
  - DRUG INEFFECTIVE [None]
  - CACHEXIA [None]
  - PYREXIA [None]
  - PATHOGEN RESISTANCE [None]
  - LEUKOCYTOSIS [None]
  - DEVICE RELATED INFECTION [None]
  - HEPATITIS C [None]
